FAERS Safety Report 4866596-0 (Version None)
Quarter: 2005Q4

REPORT INFORMATION
  Report Type: 
  Country: None (occurrence: None)
  Receive Date: 20051221
  Receipt Date: 20051208
  Transmission Date: 20060501
  Serious: Yes (Other)
  Sender: FDA-Public Use
  Company Number: 2005150906

PATIENT
  Age: 60 Year
  Sex: Female
  Weight: 63.5036 kg

DRUGS (7)
  1. CELEBREX [Suspect]
     Indication: OSTEOARTHRITIS
     Dosage: 200  MG (200 MG, 1 IN 1 D), ORAL
     Route: 048
     Dates: start: 20030101
  2. BEXTRA [Suspect]
     Indication: OSTEOARTHRITIS
     Dates: start: 20030101
  3. VIOXX [Suspect]
     Indication: OSTEOARTHRITIS
     Dosage: 50 MG (1 IN 1 D)
     Dates: start: 20040101
  4. MONTELUKAST SODIUM (MONTELUKAST SODIUM) [Concomitant]
  5. LIPITOR [Concomitant]
  6. NEXIUM [Concomitant]
  7. TOPROL-XL [Concomitant]

REACTIONS (7)
  - BLOOD CHOLESTEROL INCREASED [None]
  - BREAST CANCER [None]
  - CONSTIPATION [None]
  - JOINT SWELLING [None]
  - MIXED CONNECTIVE TISSUE DISEASE [None]
  - OEDEMA PERIPHERAL [None]
  - RENAL DISORDER [None]
